FAERS Safety Report 5684559-2 (Version None)
Quarter: 2008Q1

REPORT INFORMATION
  Report Type: 
  Country: None (occurrence: None)
  Receive Date: 20080328
  Receipt Date: 20070228
  Transmission Date: 20080703
  Serious: No
  Sender: FDA-Public Use
  Company Number: US-BRISTOL-MYERS SQUIBB COMPANY-13675053

PATIENT
  Age: 70 Year
  Sex: Male

DRUGS (9)
  1. ERBITUX [Suspect]
     Indication: NEOPLASM MALIGNANT
     Route: 042
  2. CISPLATIN [Concomitant]
  3. MAGNESIUM SULFATE [Concomitant]
  4. MANNITOL [Concomitant]
  5. DEXAMETHASONE TAB [Concomitant]
     Route: 042
  6. GRANISETRON [Concomitant]
     Route: 048
  7. APREPITANT [Concomitant]
     Route: 048
  8. HYDROXYZINE [Concomitant]
     Route: 048
  9. LORAZEPAM [Concomitant]
     Route: 042

REACTIONS (4)
  - CHEST DISCOMFORT [None]
  - HYPOTENSION [None]
  - TACHYCARDIA [None]
  - URTICARIA [None]
